FAERS Safety Report 5662558-4 (Version None)
Quarter: 2008Q1

REPORT INFORMATION
  Report Type: 
  Country: None (occurrence: None)
  Receive Date: 20080215
  Receipt Date: 20070110
  Transmission Date: 20080703
  Serious: Yes (Hospitalization)
  Sender: FDA-Public Use
  Company Number: 32427

PATIENT
  Age: 80 Year
  Sex: Male

DRUGS (2)
  1. TORADOL [Suspect]
     Indication: PAIN
     Dosage: 10 MG 1 PER 6 HOUR ORAL
     Route: 048
  2. TORADOL [Suspect]
     Indication: PAIN
     Dosage: INTRAMUSCULAR
     Route: 030

REACTIONS (1)
  - GASTRIC ULCER [None]
